FAERS Safety Report 10920332 (Version 1)
Quarter: 2015Q1

REPORT INFORMATION
  Report Type: Spontaneous
  Country: US (occurrence: None)
  Receive Date: 20150313
  Receipt Date: 20150313
  Transmission Date: 20150721
  Serious: Yes (Hospitalization)
  Sender: FDA-Public Use
  Company Number: None

PATIENT
  Age: 77 Year
  Sex: Female
  Weight: 78.93 kg

DRUGS (19)
  1. CLOPIDOGREL [Concomitant]
     Active Substance: CLOPIDOGREL BISULFATE
  2. TRAMADOL [Concomitant]
     Active Substance: TRAMADOL
  3. 50+ MULTIVITAMIN [Concomitant]
  4. N/HCTZ [Concomitant]
  5. FENOFIBRATE. [Concomitant]
     Active Substance: FENOFIBRATE
  6. GRAPESEED EXTRACT [Concomitant]
  7. RESERVATROL [Concomitant]
  8. TRIAMTERENE. [Concomitant]
     Active Substance: TRIAMTERENE
  9. AMBIEN [Concomitant]
     Active Substance: ZOLPIDEM TARTRATE
  10. CYCLOBENZPRINE [Concomitant]
  11. UBIQUINOL [Concomitant]
  12. BIOTIN [Concomitant]
     Active Substance: BIOTIN
  13. TYLENOL [Concomitant]
     Active Substance: ACETAMINOPHEN
  14. METOPROLOL SUCCINATE. [Concomitant]
     Active Substance: METOPROLOL SUCCINATE
  15. FLAXSEED [Concomitant]
     Active Substance: FLAX SEED
  16. PREMARIN VAGINAL [Suspect]
     Active Substance: ESTROGENS, CONJUGATED
     Indication: VULVOVAGINAL DRYNESS
     Route: 067
     Dates: end: 20150224
  17. PREMARIN VAGINAL [Suspect]
     Active Substance: ESTROGENS, CONJUGATED
     Indication: POSTMENOPAUSE
     Route: 067
     Dates: end: 20150224
  18. VITAMIN B COMPLEX [Concomitant]
     Active Substance: CYANOCOBALAMIN\DEXPANTHENOL\NIACINAMIDE\PYRIDOXINE HYDROCHLORIDE\RIBOFLAVIN 5^-PHOSPHATE SODIUM\THIAMINE HYDROCHLORIDE\VITAMIN B COMPLEX
  19. COQ10 [Concomitant]
     Active Substance: UBIDECARENONE

REACTIONS (14)
  - Swollen tongue [None]
  - Hot flush [None]
  - Peripheral swelling [None]
  - Monoplegia [None]
  - Abdominal pain upper [None]
  - Hyperhidrosis [None]
  - Eye disorder [None]
  - Confusional state [None]
  - Pain in jaw [None]
  - Mood altered [None]
  - Muscle spasms [None]
  - Vulvovaginal pruritus [None]
  - Alopecia [None]
  - Vulvovaginal discomfort [None]

NARRATIVE: CASE EVENT DATE: 20150201
